FAERS Safety Report 24115459 (Version 2)
Quarter: 2025Q3

REPORT INFORMATION
  Report Type: Spontaneous
  Country: US (occurrence: US)
  Receive Date: 20240721
  Receipt Date: 20250718
  Transmission Date: 20251020
  Serious: No
  Sender: NOVO NORDISK
  Company Number: US-NOVOPROD-1227971

PATIENT
  Sex: Female

DRUGS (2)
  1. WEGOVY [Suspect]
     Active Substance: SEMAGLUTIDE
     Route: 058
     Dates: start: 202406
  2. WEGOVY [Suspect]
     Active Substance: SEMAGLUTIDE
     Indication: Obesity
     Route: 058
     Dates: start: 20240302, end: 20240515

REACTIONS (3)
  - Urinary tract infection [Recovering/Resolving]
  - Nausea [Not Recovered/Not Resolved]
  - Vomiting [Recovered/Resolved]
